FAERS Safety Report 19460334 (Version 1)
Quarter: 2021Q2

REPORT INFORMATION
  Report Type: Spontaneous
  Country: FR (occurrence: NL)
  Receive Date: 20210625
  Receipt Date: 20210625
  Transmission Date: 20210717
  Serious: Yes (Hospitalization, Other)
  Sender: FDA-Public Use
  Company Number: FR-TEVA-2021-FR-1925087

PATIENT
  Age: 16 Year
  Sex: Female

DRUGS (3)
  1. CHLORHYDRATE DE TRAMADOL [Suspect]
     Active Substance: TRAMADOL HYDROCHLORIDE
     Route: 065
  2. EUPHON, SIROP [Suspect]
     Active Substance: CODEINE\HERBALS
     Route: 065
  3. COCAINE [Suspect]
     Active Substance: COCAINE
     Route: 065

REACTIONS (3)
  - Nausea [Recovered/Resolved]
  - Hypothermia [Recovered/Resolved]
  - Toxicity to various agents [Recovered/Resolved]

NARRATIVE: CASE EVENT DATE: 20210527
